FAERS Safety Report 9663298 (Version 2)
Quarter: 2013Q4

REPORT INFORMATION
  Report Type: Spontaneous
  Country: GR (occurrence: GR)
  Receive Date: 20131101
  Receipt Date: 20131127
  Transmission Date: 20140711
  Serious: Yes (Other)
  Sender: FDA-Public Use
  Company Number: GR-AMGEN-GRCSP2013076545

PATIENT
  Age: 56 Year
  Sex: Female
  Weight: 76 kg

DRUGS (4)
  1. PROLIA [Suspect]
     Indication: OSTEOPOROSIS POSTMENOPAUSAL
     Dosage: 60 MG, Q6MO
     Route: 058
     Dates: start: 20110329, end: 20121001
  2. THYROHORMONE [Concomitant]
     Indication: HYPOPARATHYROIDISM
     Dosage: 0.075 NG/D, PER OS
     Dates: start: 2007
  3. IDEOS [Concomitant]
     Indication: OSTEOPOROSIS
     Dosage: 500/400 IU/D
     Dates: start: 20091203
  4. ARTICLOX [Concomitant]
     Indication: ANAEMIA MEGALOBLASTIC
     Dosage: 5 NG, QMO
     Route: 030
     Dates: start: 1986

REACTIONS (1)
  - Leukopenia [Recovered/Resolved]
